FAERS Safety Report 25337921 (Version 2)
Quarter: 2025Q2

REPORT INFORMATION
  Report Type: Spontaneous
  Country: US (occurrence: US)
  Receive Date: 20250520
  Receipt Date: 20250521
  Transmission Date: 20250716
  Serious: Yes (Hospitalization)
  Sender: EMD SERONO INC
  Company Number: US-Merck Healthcare KGaA-2025024029

PATIENT
  Age: 66 Year
  Sex: Female

DRUGS (2)
  1. MAVENCLAD [Suspect]
     Active Substance: CLADRIBINE
     Indication: Multiple sclerosis
     Dates: start: 20241009, end: 20241013
  2. MAVENCLAD [Suspect]
     Active Substance: CLADRIBINE
     Dates: start: 20241105, end: 20241109

REACTIONS (3)
  - Vomiting [Unknown]
  - Diarrhoea [Unknown]
  - Rhinorrhoea [Unknown]
